FAERS Safety Report 19209840 (Version 2)
Quarter: 2021Q3

REPORT INFORMATION
  Report Type: Spontaneous
  Country: US (occurrence: US)
  Receive Date: 20210504
  Receipt Date: 20210908
  Transmission Date: 20211014
  Serious: No
  Sender: FDA-Public Use
  Company Number: US-FARMAPROD-202103-0384

PATIENT
  Sex: Female

DRUGS (7)
  1. VALTREX [Concomitant]
     Active Substance: VALACYCLOVIR HYDROCHLORIDE
  2. OXERVATE [Suspect]
     Active Substance: CENEGERMIN-BKBJ
     Indication: NEUROTROPHIC KERATOPATHY
     Route: 047
     Dates: start: 20210309
  3. RESTASIS [Concomitant]
     Active Substance: CYCLOSPORINE
     Dosage: DROPERETTE
  4. MOXIFLOXACIN. [Concomitant]
     Active Substance: MOXIFLOXACIN
  5. BLOOD SERUM TEARS [Concomitant]
  6. DOXYCYCLINE. [Concomitant]
     Active Substance: DOXYCYCLINE
  7. AZOPT [Concomitant]
     Active Substance: BRINZOLAMIDE

REACTIONS (4)
  - Lacrimation increased [Unknown]
  - Vision blurred [Unknown]
  - Product dose omission issue [Unknown]
  - Wrong technique in product usage process [Unknown]
